FAERS Safety Report 21666905 (Version 2)
Quarter: 2024Q4

REPORT INFORMATION
  Report Type: Report from Study
  Country: DE (occurrence: DE)
  Receive Date: 20221201
  Receipt Date: 20241211
  Transmission Date: 20250114
  Serious: No
  Sender: ROCHE
  Company Number: DE-ROCHE-3226911

PATIENT
  Age: 29 Year
  Sex: Male
  Weight: 66 kg

DRUGS (7)
  1. OCREVUS [Suspect]
     Active Substance: OCRELIZUMAB
     Indication: Relapsing multiple sclerosis
     Route: 042
     Dates: start: 20211108, end: 20211122
  2. OCREVUS [Suspect]
     Active Substance: OCRELIZUMAB
     Route: 042
     Dates: start: 20220519
  3. TERIFLUNOMIDE [Concomitant]
     Active Substance: TERIFLUNOMIDE
     Indication: Multiple sclerosis
     Route: 048
     Dates: start: 20201208, end: 20210622
  4. CIMETIDIN [Concomitant]
     Indication: Premedication
     Route: 042
     Dates: start: 20220519
  5. CIMETIDIN [Concomitant]
     Route: 042
     Dates: start: 20211108, end: 20211122
  6. CLARISCAN [Concomitant]
     Active Substance: GADOTERATE MEGLUMINE
     Indication: Premedication
     Route: 042
     Dates: start: 20241001, end: 20241001
  7. Colestyramine 20 [Concomitant]
     Indication: Prophylaxis
     Dates: start: 202107, end: 20210809

REACTIONS (2)
  - COVID-19 [Recovered/Resolved]
  - COVID-19 [Recovered/Resolved]

NARRATIVE: CASE EVENT DATE: 20221008
